FAERS Safety Report 7373064-3 (Version None)
Quarter: 2011Q1

REPORT INFORMATION
  Report Type: 
  Country: None (occurrence: None)
  Receive Date: 20110314
  Receipt Date: 20110302
  Transmission Date: 20110831
  Serious: Yes (Death, Life-Threatening, Hospitalization, Other)
  Sender: FDA-Public Use
  Company Number: 012278

PATIENT
  Age: 57 Year
  Sex: Female

DRUGS (32)
  1. ACYCLOVIR [Concomitant]
  2. ESTRADIOL [Concomitant]
  3. FLUOXETINE HCL [Concomitant]
  4. FUROSEMIDE [Concomitant]
  5. OMEPRAZOLE [Concomitant]
  6. SUCCINYLCHOLINE CHLORIDE [Concomitant]
  7. ACETAMINOPHEN [Concomitant]
  8. BUPROPION HCL [Concomitant]
  9. AQUAPHOR HEALING OINTMENT (BISABOLOL, CERESIN, PARAFFIN SOFT, PARAFFIN [Concomitant]
  10. FLUCONAZOLE [Concomitant]
  11. CYCLOPHOSPHAMIDE [Concomitant]
  12. DIVALPROEX SODIUM [Concomitant]
  13. FILGRASTIM (FILGRASTIM) [Concomitant]
  14. BUSULFAN [Suspect]
     Indication: STEM CELL TRANSPLANT
     Dosage: 44 MG, SINGLE, 181 MG, DAILY DOSE,  INTRAVENOUS
     Route: 042
     Dates: start: 20101101, end: 20101101
  15. BUSULFAN [Suspect]
     Indication: STEM CELL TRANSPLANT
     Dosage: 44 MG, SINGLE, 181 MG, DAILY DOSE,  INTRAVENOUS
     Route: 042
     Dates: start: 20101104, end: 20101107
  16. VORICONAZOLE [Concomitant]
  17. CONJUGEN (EQUILIN SULFATE SODIUM, ESTRONE SODIUM SULFATE) [Concomitant]
  18. HEPARIN [Concomitant]
  19. VANCOMYCIN [Concomitant]
  20. CLOTRIMAZOLE [Concomitant]
  21. HYDROMORPHONE (IHYDROMORPHONE) [Concomitant]
  22. LOPERAMIDE [Concomitant]
  23. ETOMIDATE [Concomitant]
  24. MEROPENEM [Concomitant]
  25. PHENAZOPYRIDINE (PHENAZOPYRIDINE) [Concomitant]
  26. URSODIOL [Concomitant]
  27. LEVOFLOXACIN (ILEVOFLOXACIN) [Concomitant]
  28. MAGNESIUM SIULFATE (MAGNESIUM SULFATE) [Concomitant]
  29. DIPHENHYDRAMINE HCL [Concomitant]
  30. OXYCODONE (OXYCODONE) [Concomitant]
  31. ETOPOSIDE [Concomitant]
  32. FENTANYL [Concomitant]

REACTIONS (11)
  - LUNG INFECTION [None]
  - PULMONARY OEDEMA [None]
  - RENAL FAILURE ACUTE [None]
  - ASPERGILLOSIS [None]
  - RESPIRATORY FAILURE [None]
  - SINUS TACHYCARDIA [None]
  - GENERAL PHYSICAL HEALTH DETERIORATION [None]
  - LUNG NEOPLASM [None]
  - FEBRILE NEUTROPENIA [None]
  - HYPERNATRAEMIA [None]
  - BACTERIAL TEST POSITIVE [None]
